FAERS Safety Report 10083392 (Version 1)
Quarter: 2014Q2

REPORT INFORMATION
  Report Type: Report from Study
  Country: BR (occurrence: BR)
  Receive Date: 20140417
  Receipt Date: 20140417
  Transmission Date: 20141212
  Serious: Yes (Hospitalization, Disabling, Other)
  Sender: FDA-Public Use
  Company Number: BR-BAYER-2014-054462

PATIENT
  Age: 36 Year
  Sex: Female

DRUGS (4)
  1. BETAFERON [Suspect]
     Indication: MULTIPLE SCLEROSIS
     Dosage: UNK
     Route: 058
     Dates: start: 201401, end: 201401
  2. BETAFERON [Suspect]
     Indication: MULTIPLE SCLEROSIS
     Dosage: UNK
     Dates: start: 20140409
  3. STILNOX [Concomitant]
     Indication: SLEEP DISORDER
     Dosage: 2 DF, QD
     Route: 048
  4. DONAREN [Concomitant]
     Indication: ANXIETY
     Dosage: 2 DF, QD
     Route: 048
     Dates: start: 2013

REACTIONS (6)
  - Multiple sclerosis relapse [None]
  - Mental impairment [None]
  - Abasia [Not Recovered/Not Resolved]
  - Asthenia [Not Recovered/Not Resolved]
  - Dysstasia [Not Recovered/Not Resolved]
  - Fatigue [Not Recovered/Not Resolved]
